FAERS Safety Report 10932300 (Version 1)
Quarter: 2015Q1

REPORT INFORMATION
  Report Type: Spontaneous
  Country: JP (occurrence: JP)
  Receive Date: 20150320
  Receipt Date: 20150320
  Transmission Date: 20150721
  Serious: Yes (Other)
  Sender: FDA-Public Use
  Company Number: PHHY2015JP032728

PATIENT
  Age: 55 Year
  Sex: Female

DRUGS (1)
  1. MEXILETINE [Suspect]
     Active Substance: MEXILETINE
     Indication: PRODUCT USED FOR UNKNOWN INDICATION
     Route: 065

REACTIONS (5)
  - Human herpesvirus 6 infection [Unknown]
  - Eosinophilia [Unknown]
  - Rash maculo-papular [Unknown]
  - Leukocytosis [Unknown]
  - Drug reaction with eosinophilia and systemic symptoms [Unknown]
